FAERS Safety Report 4356511-0 (Version None)
Quarter: 2004Q2

REPORT INFORMATION
  Report Type: 
  Country: None (occurrence: None)
  Receive Date: 20040506
  Receipt Date: 20040427
  Transmission Date: 20050107
  Serious: Yes (Hospitalization)
  Sender: FDA-Public Use
  Company Number: 2004210888JP

PATIENT
  Age: 74 Year
  Sex: Male

DRUGS (2)
  1. CAMPTOSAR [Suspect]
     Indication: COLORECTAL CANCER
     Dosage: 100 MG/M2, INTERMITTENT, IV DRIP
     Route: 041
     Dates: start: 20040219, end: 20040416
  2. TS-1 (TEGAFUR, GIMERACIL, OTERACIL POTASSIUM) [Suspect]
     Indication: COLORECTAL CANCER
     Dosage: ORAL
     Route: 048
     Dates: start: 20040219

REACTIONS (3)
  - ANURIA [None]
  - HAEMOLYTIC ANAEMIA [None]
  - RHABDOMYOLYSIS [None]
